FAERS Safety Report 11427845 (Version 1)
Quarter: 2015Q3

REPORT INFORMATION
  Report Type: Spontaneous
  Country: US (occurrence: None)
  Receive Date: 20150826
  Receipt Date: 20150826
  Transmission Date: 20151125
  Serious: Yes (Hospitalization)
  Sender: FDA-Public Use
  Company Number: PR 14758

PATIENT
  Age: 71 Year
  Sex: Female

DRUGS (3)
  1. EUTHYROX (LEVOTHYROXINE) [Concomitant]
  2. SIMVASTATIN. [Concomitant]
     Active Substance: SIMVASTATIN
  3. COSOPT [Suspect]
     Active Substance: DORZOLAMIDE HYDROCHLORIDE\TIMOLOL MALEATE
     Indication: GLAUCOMA
     Dosage: 1 DROP/EACH EYE?4/DAY
     Dates: start: 2005

REACTIONS (5)
  - Psoriasis [None]
  - Cataract [None]
  - Cough [None]
  - Stress [None]
  - Nasopharyngitis [None]

NARRATIVE: CASE EVENT DATE: 2012
